FAERS Safety Report 6340504-8 (Version None)
Quarter: 2009Q3

REPORT INFORMATION
  Report Type: 
  Country: None (occurrence: None)
  Receive Date: 20090902
  Receipt Date: 20090820
  Transmission Date: 20100115
  Serious: Yes (Disabling, Other)
  Sender: FDA-Public Use
  Company Number: 2009AP003405

PATIENT
  Age: 38 Year
  Sex: Female

DRUGS (6)
  1. CLARITHROMYCIN [Suspect]
     Indication: LOWER RESPIRATORY TRACT INFECTION
     Dosage: 500 MG; BID PO
     Route: 048
     Dates: start: 20090720, end: 20090721
  2. AMOXICILLIN [Concomitant]
  3. CALCIPOTRIOL (CALCIPOTRIOL) [Concomitant]
  4. CEPHALEXIN [Concomitant]
  5. NORETHISTERONE (NORETHISTERONE) [Concomitant]
  6. SALBUTAMOL (SALBUTAMOL) [Concomitant]

REACTIONS (3)
  - DYSKINESIA [None]
  - PALPITATIONS [None]
  - PARAESTHESIA [None]
